FAERS Safety Report 4544805-5 (Version None)
Quarter: 2005Q1

REPORT INFORMATION
  Report Type: 
  Country: None (occurrence: None)
  Receive Date: 20050105
  Receipt Date: 20041224
  Transmission Date: 20050727
  Serious: Yes (Hospitalization)
  Sender: FDA-Public Use
  Company Number: FR-ROCHE-390608

PATIENT
  Age: 89 Year
  Sex: Female

DRUGS (5)
  1. ROCEPHIN [Suspect]
     Route: 030
     Dates: start: 20030210, end: 20030218
  2. MONO-TILDIEM [Suspect]
     Indication: ESSENTIAL HYPERTENSION
     Route: 048
     Dates: start: 20030121, end: 20030218
  3. SEROPRAM [Suspect]
     Indication: DRUG USE FOR UNKNOWN INDICATION
     Route: 030
     Dates: start: 20030121, end: 20030218
  4. AUGMENTIN '125' [Suspect]
     Route: 048
     Dates: start: 20030210, end: 20030218
  5. LASILIX [Suspect]
     Indication: CARDIAC FAILURE
     Route: 048
     Dates: start: 20030121, end: 20030218

REACTIONS (5)
  - GINGIVAL BLEEDING [None]
  - HAEMATOMA [None]
  - HAEMORRHAGE [None]
  - THROMBOCYTOPENIA [None]
  - THROMBOCYTOPENIC PURPURA [None]
